FAERS Safety Report 4900278-1 (Version None)
Quarter: 2006Q1

REPORT INFORMATION
  Report Type: 
  Country: None (occurrence: None)
  Receive Date: 20060203
  Receipt Date: 20060123
  Transmission Date: 20060701
  Serious: Yes (Hospitalization)
  Sender: FDA-Public Use
  Company Number: AU-ROCHE-433380

PATIENT
  Age: 73 Year
  Sex: Female

DRUGS (9)
  1. DUCENE [Suspect]
     Dosage: ONE TIME.
     Route: 048
  2. AVANZA [Suspect]
     Indication: DEPRESSION
     Dosage: ONE TIME.
     Route: 048
  3. RANITIDINE [Concomitant]
     Route: 048
  4. ATORVASTATIN CALCIUM [Concomitant]
     Route: 048
  5. IRBESARTAN [Concomitant]
     Dosage: DRUG NAME REPORTED AS IRBESARTAN-HYDROCHLOROTHIAZIDE. REPORTED AS ^1.0 DOSE UNSPECIFIED^.
  6. PREDNISOLONE [Concomitant]
     Route: 048
  7. FLUOROMETHOLONE [Concomitant]
     Dosage: REPORTED AS ^1.0 DOSE UNSPECIFIED^.
     Route: 047
  8. BIMATOPROST [Concomitant]
     Dosage: REPORTED AS ^1.0 DOSE UNSPECIFIED^.
     Route: 047
  9. BRINZOLAMIDE [Concomitant]
     Dosage: REPORTED AS ^3.0 DOSE UNSPECIFIED^.
     Route: 047

REACTIONS (3)
  - LOSS OF CONSCIOUSNESS [None]
  - ORTHOSTATIC HYPOTENSION [None]
  - SYNCOPE [None]
